FAERS Safety Report 9500390 (Version 1)
Quarter: 2013Q3

REPORT INFORMATION
  Report Type: Spontaneous
  Country: US (occurrence: None)
  Receive Date: 20130903
  Receipt Date: 20130903
  Transmission Date: 20140515
  Serious: Yes (Hospitalization)
  Sender: FDA-Public Use
  Company Number: 91383

PATIENT
  Age: 52 Year
  Sex: Female

DRUGS (1)
  1. VINORELBINE TARTRATE [Suspect]
     Indication: BREAST CANCER
     Dates: start: 20090511, end: 20090618

REACTIONS (2)
  - Cholelithiasis [None]
  - Constipation [None]
